FAERS Safety Report 6189776-3 (Version None)
Quarter: 2009Q2

REPORT INFORMATION
  Report Type: 
  Country: None (occurrence: None)
  Receive Date: 20090512
  Receipt Date: 20090427
  Transmission Date: 20091009
  Serious: Yes (Disabling, Other)
  Sender: FDA-Public Use
  Company Number: 2009S1007247

PATIENT
  Age: 59 Year
  Sex: Female

DRUGS (7)
  1. CHLOROQUINE PHOSPHATE [Suspect]
     Indication: RHEUMATOID ARTHRITIS
  2. AZATHIOPRINE [Suspect]
     Indication: RHEUMATOID ARTHRITIS
  3. CHLORAMBUCIL     (CHLORAMBUCIL) [Suspect]
     Indication: RHEUMATOID ARTHRITIS
     Dates: start: 19870101, end: 19910101
  4. CHLORAMBUCIL     (CHLORAMBUCIL) [Suspect]
     Indication: RHEUMATOID ARTHRITIS
     Dates: start: 19980101
  5. MYOCRISIN [Concomitant]
  6. PODOPHYLLOTOXIN [Concomitant]
  7. PENICILLAMINE [Concomitant]

REACTIONS (1)
  - PROGRESSIVE MULTIFOCAL LEUKOENCEPHALOPATHY [None]
